FAERS Safety Report 16465679 (Version 6)
Quarter: 2021Q2

REPORT INFORMATION
  Report Type: Spontaneous
  Country: US (occurrence: US)
  Receive Date: 20190621
  Receipt Date: 20210511
  Transmission Date: 20210716
  Serious: Yes (Hospitalization, Other)
  Sender: FDA-Public Use
  Company Number: US-PFIZER INC-2019267979

PATIENT
  Age: 75 Year
  Sex: Female
  Weight: 83.91 kg

DRUGS (5)
  1. ZOLOFT [Suspect]
     Active Substance: SERTRALINE HYDROCHLORIDE
     Dosage: 100 MG, 1X/DAY
     Dates: start: 1993
  2. ZOLOFT [Suspect]
     Active Substance: SERTRALINE HYDROCHLORIDE
     Indication: DEPRESSION
     Dosage: UNK
     Dates: start: 1993
  3. COREG [Concomitant]
     Active Substance: CARVEDILOL
     Dosage: UNK
  4. ZOLOFT [Suspect]
     Active Substance: SERTRALINE HYDROCHLORIDE
     Dosage: 100 MG, 1X/DAY
     Dates: start: 1994
  5. ZOLOFT [Suspect]
     Active Substance: SERTRALINE HYDROCHLORIDE
     Indication: MULTIPLE SCLEROSIS
     Dosage: 100 MG, 2X/DAY (ONCE IN THE MORNING AND ONCE AT NIGHT)
     Dates: start: 1993

REACTIONS (12)
  - Nausea [Unknown]
  - Headache [Recovered/Resolved]
  - Dysgraphia [Unknown]
  - Withdrawal syndrome [Unknown]
  - Illness [Unknown]
  - Diarrhoea [Unknown]
  - Abdominal pain upper [Unknown]
  - Abdominal pain [Unknown]
  - Multiple sclerosis [Recovered/Resolved]
  - Hypoacusis [Recovered/Resolved]
  - Neuropathy peripheral [Not Recovered/Not Resolved]
  - Vomiting [Unknown]
